FAERS Safety Report 6132784-9 (Version None)
Quarter: 2009Q1

REPORT INFORMATION
  Report Type: 
  Country: None (occurrence: None)
  Receive Date: 20090325
  Receipt Date: 20090325
  Transmission Date: 20090719
  Serious: Yes (Hospitalization)
  Sender: FDA-Public Use
  Company Number: None

PATIENT
  Age: 62 Year
  Sex: Male

DRUGS (2)
  1. MORPHINE [Suspect]
     Indication: PAIN
     Dosage: 15 MG OTHER PO
     Route: 048
     Dates: start: 20080523, end: 20090209
  2. ZOLPIDEM [Suspect]
     Indication: INSOMNIA
     Dosage: 10 MG PRN PO
     Route: 048
     Dates: start: 20080911, end: 20090205

REACTIONS (6)
  - ABNORMAL BEHAVIOUR [None]
  - CONFUSIONAL STATE [None]
  - DELIRIUM [None]
  - FALL [None]
  - HALLUCINATION, VISUAL [None]
  - PAIN [None]
